FAERS Safety Report 22153551 (Version 1)
Quarter: 2023Q1

REPORT INFORMATION
  Report Type: Spontaneous
  Country: US (occurrence: US)
  Receive Date: 20230330
  Receipt Date: 20230330
  Transmission Date: 20230418
  Serious: Yes (Hospitalization, Other)
  Sender: FDA-Public Use
  Company Number: US-GLAND PHARMA LIMITED-2023US001029

PATIENT

DRUGS (3)
  1. VERAPAMIL HYDROCHLORIDE [Suspect]
     Active Substance: VERAPAMIL HYDROCHLORIDE
     Indication: Product used for unknown indication
     Dosage: 240 MG
     Route: 065
  2. FUROSEMIDE [Suspect]
     Active Substance: FUROSEMIDE
     Indication: Product used for unknown indication
     Dosage: 20 MG
     Route: 065
  3. LISINOPRIL [Suspect]
     Active Substance: LISINOPRIL
     Indication: Product used for unknown indication
     Dosage: 20 MG
     Route: 065

REACTIONS (3)
  - BRASH syndrome [Recovered/Resolved]
  - Syncope [Recovered/Resolved]
  - Hypotension [Recovered/Resolved]
